FAERS Safety Report 7751579-3 (Version None)
Quarter: 2011Q3

REPORT INFORMATION
  Report Type: 
  Country: None (occurrence: None)
  Receive Date: 20110914
  Receipt Date: 20110909
  Transmission Date: 20111222
  Serious: Yes (Hospitalization)
  Sender: FDA-Public Use
  Company Number: PHEH2011US03795

PATIENT
  Sex: Female
  Weight: 61.35 kg

DRUGS (2)
  1. EXJADE [Suspect]
     Indication: MULTIPLE MYELOMA
     Dosage: 1250 MG, EVERY DAY
     Route: 048
     Dates: start: 20110101
  2. CHEMOTHERAPEUTICS [Concomitant]

REACTIONS (1)
  - HERPES ZOSTER [None]
